FAERS Safety Report 4539908-5 (Version None)
Quarter: 2004Q4

REPORT INFORMATION
  Report Type: 
  Country: None (occurrence: None)
  Receive Date: 20041223
  Receipt Date: 20041215
  Transmission Date: 20050328
  Serious: Yes (Death)
  Sender: FDA-Public Use
  Company Number: 2004115012

PATIENT
  Age: 77 Year
  Sex: Female
  Weight: 65 kg

DRUGS (9)
  1. DALTEPARIN (DALTEPARIN) [Suspect]
     Indication: PHLEBITIS
     Dosage: 15000 UNITS, SUBCUTANEOUS
     Route: 058
     Dates: start: 20040901, end: 20040908
  2. FLUINDIONE (FLUINDIONE) [Suspect]
     Indication: PHLEBITIS
     Dosage: 15 MG, ORAL
     Route: 048
     Dates: end: 20040909
  3. LANSOPRAZOLE [Concomitant]
  4. ENALAPRIL (ENALAPRIL) [Concomitant]
  5. ZOLPIDEM TARTRATE [Concomitant]
  6. TIAPRIDE (TIAPRIDE) [Concomitant]
  7. PREDNISONE [Concomitant]
  8. ALUMINIUM MAGNESIUM SILICATE (ALUMINIUM MAGNESIUM SILICATE) [Concomitant]
  9. PHLOROGLUCINOL (PHLOROGLUCINOL) [Concomitant]

REACTIONS (15)
  - BLOOD GLUCOSE INCREASED [None]
  - BLOOD PRESSURE DIASTOLIC DECREASED [None]
  - BLOOD PRESSURE SYSTOLIC INCREASED [None]
  - COMA [None]
  - HAEMOGLOBIN DECREASED [None]
  - HAEMORRHAGE INTRACRANIAL [None]
  - HEMIPLEGIA [None]
  - INTRACRANIAL HAEMATOMA [None]
  - KNEE ARTHROPLASTY [None]
  - MYDRIASIS [None]
  - PHLEBITIS [None]
  - PLATELET COUNT INCREASED [None]
  - PUPILLARY REFLEX IMPAIRED [None]
  - TACHYCARDIA [None]
  - WHITE BLOOD CELL COUNT INCREASED [None]
